FAERS Safety Report 24595995 (Version 4)
Quarter: 2024Q4

REPORT INFORMATION
  Report Type: Report from Study
  Country: DE (occurrence: DE)
  Receive Date: 20241109
  Receipt Date: 20241118
  Transmission Date: 20250115
  Serious: Yes (Hospitalization, Other)
  Sender: ABBVIE
  Company Number: DE-ABBVIE-5989326

PATIENT
  Sex: Male

DRUGS (2)
  1. CARBIDOPA\LEVODOPA [Suspect]
     Active Substance: CARBIDOPA\LEVODOPA
     Indication: Parkinson^s disease
     Dosage: MD 8.0 ML, CRT 7.5 ML/H, CRN 5.0 ML/H, ED 3.0 ML
     Route: 050
     Dates: start: 20190507
  2. CARBIDOPA\LEVODOPA [Suspect]
     Active Substance: CARBIDOPA\LEVODOPA

REACTIONS (4)
  - Cerebrovascular accident [Not Recovered/Not Resolved]
  - Akinesia [Not Recovered/Not Resolved]
  - On and off phenomenon [Unknown]
  - Puncture site erythema [Unknown]

NARRATIVE: CASE EVENT DATE: 20241101
